FAERS Safety Report 7401060-6 (Version None)
Quarter: 2011Q2

REPORT INFORMATION
  Report Type: 
  Country: None (occurrence: None)
  Receive Date: 20110407
  Receipt Date: 20110329
  Transmission Date: 20111010
  Serious: Yes (Other)
  Sender: FDA-Public Use
  Company Number: NL-ABBOTT-11P-114-0716818-00

PATIENT
  Age: 61 Year
  Sex: Male

DRUGS (10)
  1. ABACAVIR [Concomitant]
     Indication: HIV INFECTION
  2. RITONAVIR [Suspect]
  3. SAQUINAVIR [Suspect]
     Indication: HIV INFECTION
  4. RITONAVIR [Suspect]
     Indication: HIV INFECTION
  5. LAMIVUDINE [Suspect]
     Indication: HIV INFECTION
  6. ATAZANAVIR [Concomitant]
     Indication: HIV INFECTION
  7. NEVIRAPINE [Concomitant]
     Indication: HIV INFECTION
  8. TENOFOVIR [Concomitant]
     Indication: HIV INFECTION
  9. ZIDOVUDINE [Suspect]
     Indication: HIV INFECTION
  10. EMTRICITABINE [Concomitant]
     Indication: HIV INFECTION

REACTIONS (5)
  - RENAL TUBULAR DISORDER [None]
  - POLYNEUROPATHY [None]
  - PROTEINURIA [None]
  - HEPATIC ENZYME ABNORMAL [None]
  - BLOOD CREATININE INCREASED [None]
